FAERS Safety Report 11011780 (Version 1)
Quarter: 2015Q2

REPORT INFORMATION
  Report Type: Spontaneous
  Country: BE (occurrence: BE)
  Receive Date: 20150410
  Receipt Date: 20150410
  Transmission Date: 20150821
  Serious: Yes (Life-Threatening, Hospitalization, Other)
  Sender: FDA-Public Use
  Company Number: BE-BRISTOL-MYERS SQUIBB COMPANY-BMS-2015-022098

PATIENT
  Age: 93 Year
  Sex: Female
  Weight: 51 kg

DRUGS (16)
  1. ISOTEN [Concomitant]
     Indication: PRODUCT USED FOR UNKNOWN INDICATION
     Dosage: 5 MG, QD
     Route: 065
  2. TEMESTA                            /00273201/ [Concomitant]
     Active Substance: LORAZEPAM
     Indication: SLEEP DISORDER
  3. FRAXIPARINE                        /01437701/ [Concomitant]
     Active Substance: NADROPARIN CALCIUM
     Indication: PRODUCT USED FOR UNKNOWN INDICATION
     Dosage: 0.4 ML, QD
     Route: 065
     Dates: start: 20150126, end: 20150202
  4. PANTOMED                           /01263204/ [Suspect]
     Active Substance: PANTOPRAZOLE SODIUM
     Indication: PRODUCT USED FOR UNKNOWN INDICATION
     Dosage: 20 MG, QD
     Route: 048
     Dates: start: 20150127, end: 20150209
  5. EMCONCOR [Concomitant]
     Active Substance: BISOPROLOL FUMARATE
     Indication: CARDIAC DISORDER
     Dosage: 5 MG, QD
     Route: 065
  6. BETASERC                           /00141801/ [Concomitant]
     Indication: PRODUCT USED FOR UNKNOWN INDICATION
     Dosage: 2 DF, BID
     Route: 065
  7. SWEET ALMOND OIL [Concomitant]
     Active Substance: ALMOND OIL
     Indication: DRY SKIN
     Dosage: UNK, TID
     Route: 065
  8. STEOVIT D3 [Concomitant]
     Indication: PRODUCT USED FOR UNKNOWN INDICATION
     Dosage: 1 G, UNK
     Route: 065
     Dates: start: 20150126, end: 20150209
  9. FRAXODI [Concomitant]
     Active Substance: NADROPARIN CALCIUM
     Indication: PRODUCT USED FOR UNKNOWN INDICATION
     Route: 065
  10. MOVICOL [Concomitant]
     Active Substance: POLYETHYLENE GLYCOL 3350\POTASSIUM CHLORIDE\SODIUM BICARBONATE\SODIUM CHLORIDE
     Indication: CONSTIPATION
     Dosage: 1 DF, QD
     Route: 065
  11. AMLOR [Concomitant]
     Active Substance: AMLODIPINE BESYLATE
     Indication: BLOOD PRESSURE
     Dosage: 10 MG, QD
     Route: 065
  12. OMEPRAZOLE. [Concomitant]
     Active Substance: OMEPRAZOLE
     Indication: PRODUCT USED FOR UNKNOWN INDICATION
     Dosage: UNK, QD
     Route: 065
  13. GLUCOPHAGE [Suspect]
     Active Substance: METFORMIN HYDROCHLORIDE
     Indication: PRODUCT USED FOR UNKNOWN INDICATION
     Dosage: 500 MG, QD
     Route: 065
     Dates: end: 20150202
  14. PROLOPA [Concomitant]
     Active Substance: BENSERAZIDE\LEVODOPA
     Indication: PRODUCT USED FOR UNKNOWN INDICATION
     Dosage: 125 MG, QD
     Route: 065
  15. TEMESTA                            /00273201/ [Concomitant]
     Active Substance: LORAZEPAM
     Indication: ANXIETY
     Dosage: 1 MG, QD
     Route: 065
  16. UNI DIAMICRON [Concomitant]
     Active Substance: GLICLAZIDE
     Indication: PRODUCT USED FOR UNKNOWN INDICATION
     Dosage: 2 DF, QD
     Route: 065

REACTIONS (15)
  - Blood glucose increased [Recovering/Resolving]
  - Tubulointerstitial nephritis [Recovering/Resolving]
  - Pneumonia [Unknown]
  - Osteopenia [Unknown]
  - Serum ferritin increased [Unknown]
  - Cardiomegaly [Not Recovered/Not Resolved]
  - General physical health deterioration [Unknown]
  - Back pain [Unknown]
  - Cardiac failure [Unknown]
  - Spinal disorder [Unknown]
  - Blood lactate dehydrogenase increased [Unknown]
  - Haematoma [None]
  - Acute kidney injury [Recovering/Resolving]
  - Fall [Unknown]
  - Urinary tract infection [Unknown]

NARRATIVE: CASE EVENT DATE: 20150125
